FAERS Safety Report 13562046 (Version 3)
Quarter: 2017Q2

REPORT INFORMATION
  Report Type: Report from Study
  Country: None (occurrence: BE)
  Receive Date: 20170518
  Receipt Date: 20170526
  Transmission Date: 20170830
  Serious: Yes (Hospitalization)
  Sender: FDA-Public Use
  Company Number: BE-ABBVIE-16P-013-1564764-00

PATIENT
  Age: 87 Year
  Sex: Female

DRUGS (14)
  1. DUODOPA [Suspect]
     Active Substance: CARBIDOPA\LEVODOPA
     Dosage: AM= 2 ML; CD=3.9 ML/H DURING 16 HRS; ND= 2 ML/H DURING 8 HRS; ED= 2.5 ML
     Route: 050
     Dates: start: 20161017, end: 20170518
  2. NUTROF [Concomitant]
     Indication: PRODUCT USED FOR UNKNOWN INDICATION
  3. DUODOPA [Suspect]
     Active Substance: CARBIDOPA\LEVODOPA
     Indication: PARKINSON^S DISEASE
     Dosage: AM=11.5ML; CD=3.4ML/HR DURING 16HRS; ED=3.5ML
     Route: 050
     Dates: start: 20100426, end: 20100428
  4. DUODOPA [Suspect]
     Active Substance: CARBIDOPA\LEVODOPA
     Dosage: AM=2ML; CD=4ML/HR DURING 16HRS; ED=2.5ML
     Route: 050
     Dates: start: 20150120, end: 20161017
  5. DUODOPA [Suspect]
     Active Substance: CARBIDOPA\LEVODOPA
     Dosage: AM: 2 ML,CD: 3.6 ML/HR DURING 16 HRS,ED: 2.5 ML ND: 2 ML/HR DURING 8 HRS
     Route: 050
     Dates: start: 20170518
  6. VITAMIN D [Concomitant]
     Active Substance: CHOLECALCIFEROL
     Indication: PRODUCT USED FOR UNKNOWN INDICATION
  7. DUODOPA [Suspect]
     Active Substance: CARBIDOPA\LEVODOPA
     Dosage: DOSES CONTINUOUSLY MONITORED AND ADAPTED.
     Route: 050
     Dates: start: 20100428, end: 20150120
  8. PROLOPA [Concomitant]
     Active Substance: BENSERAZIDE\LEVODOPA
     Indication: PARKINSON^S DISEASE
     Dosage: FORM STRENGTH: 200MG/50MG
     Route: 048
  9. PROLOPA [Concomitant]
     Active Substance: BENSERAZIDE\LEVODOPA
     Dosage: FORM STRENGTH: 200MG/50MG; UNIT DOSE=0.5 TAB, 0.25 TAB,
     Route: 048
  10. PROLOPA [Concomitant]
     Active Substance: BENSERAZIDE\LEVODOPA
     Dosage: FORM STRENGTH: 200MG/50MG; UNIT DOSE=0.5 TAB + 0.25 EXTRA,
     Route: 048
  11. PROLOPA [Concomitant]
     Active Substance: BENSERAZIDE\LEVODOPA
     Dosage: FORM STRENGTH:200MG/50MG; UNIT DOSE=0.5 TAB, 0.25 TAB,
     Route: 048
  12. SIMVASTATINE [Concomitant]
     Active Substance: SIMVASTATIN
     Indication: PRODUCT USED FOR UNKNOWN INDICATION
  13. PROLOPA [Concomitant]
     Active Substance: BENSERAZIDE\LEVODOPA
     Dosage: FORM STRENGTH:200MG/50MG, 1 AT EVENING WHEN TREMOR
     Route: 048
  14. LEVODOPA/BENSERAZIDE [Concomitant]
     Active Substance: BENSERAZIDE\LEVODOPA
     Indication: PRODUCT USED FOR UNKNOWN INDICATION
     Dosage: FORM STRENGTH: 200MG/50MG; UNIT DOSE: 0.25 TABLET, IN EMERGENGY CONDITION
     Route: 048

REACTIONS (16)
  - General physical health deterioration [Unknown]
  - Nervousness [Unknown]
  - Stoma site discharge [Recovered/Resolved]
  - Tremor [Recovered/Resolved]
  - Pain [Unknown]
  - Device issue [Unknown]
  - Balance disorder [Unknown]
  - Fall [Unknown]
  - Stoma site erythema [Not Recovered/Not Resolved]
  - Device occlusion [Recovered/Resolved]
  - Stoma site hypergranulation [Unknown]
  - Tremor [Not Recovered/Not Resolved]
  - Insomnia [Unknown]
  - Dyskinesia [Recovered/Resolved]
  - Freezing phenomenon [Unknown]
  - Dyskinesia [Not Recovered/Not Resolved]

NARRATIVE: CASE EVENT DATE: 20160802
